FAERS Safety Report 23940033 (Version 4)
Quarter: 2025Q1

REPORT INFORMATION
  Report Type: Report from Study
  Country: CN (occurrence: CN)
  Receive Date: 20240605
  Receipt Date: 20250331
  Transmission Date: 20250408
  Serious: Yes (Other)
  Sender: ROCHE
  Company Number: CN-ROCHE-3574863

PATIENT
  Age: 69 Year
  Sex: Female
  Weight: 74 kg

DRUGS (28)
  1. POLATUZUMAB VEDOTIN [Suspect]
     Active Substance: POLATUZUMAB VEDOTIN
     Indication: Diffuse large B-cell lymphoma
     Route: 042
     Dates: start: 20230813, end: 20230813
  2. RITUXIMAB [Suspect]
     Active Substance: RITUXIMAB
     Indication: Diffuse large B-cell lymphoma
     Route: 042
     Dates: start: 20230812, end: 20230812
  3. RITUXIMAB [Suspect]
     Active Substance: RITUXIMAB
     Route: 042
     Dates: start: 20230911, end: 20230911
  4. RITUXIMAB [Suspect]
     Active Substance: RITUXIMAB
     Route: 042
     Dates: start: 20231014, end: 20231014
  5. RITUXIMAB [Suspect]
     Active Substance: RITUXIMAB
     Route: 042
     Dates: start: 20231204, end: 20231204
  6. TUCIDINOSTAT [Suspect]
     Active Substance: TUCIDINOSTAT
     Indication: Diffuse large B-cell lymphoma
     Route: 065
  7. GEMCITABINE [Suspect]
     Active Substance: GEMCITABINE
     Indication: Diffuse large B-cell lymphoma
     Route: 065
  8. OXALIPLATIN [Suspect]
     Active Substance: OXALIPLATIN
     Indication: Diffuse large B-cell lymphoma
     Route: 065
  9. VENETOCLAX [Suspect]
     Active Substance: VENETOCLAX
     Indication: Diffuse large B-cell lymphoma
     Route: 065
  10. Acetylcysteine tablets [Concomitant]
     Route: 048
     Dates: start: 20231108
  11. Acetylcysteine tablets [Concomitant]
     Route: 048
     Dates: start: 20230911, end: 20231005
  12. METHYLPREDNISOLONE SODIUM SUCCINATE [Concomitant]
     Active Substance: METHYLPREDNISOLONE SODIUM SUCCINATE
     Route: 042
     Dates: start: 20231014, end: 20231014
  13. omeprazole enteric-coated capsules [Concomitant]
     Route: 048
     Dates: start: 20231014
  14. PROMETHAZINE [Concomitant]
     Active Substance: PROMETHAZINE HYDROCHLORIDE
     Route: 030
     Dates: start: 20231015, end: 20231015
  15. Compound Paracetamol tablets II [Concomitant]
     Route: 048
     Dates: start: 20231015, end: 20231015
  16. Relapsing acetaminophen tablets [Concomitant]
     Route: 048
     Dates: start: 20231108, end: 20231108
  17. VORICONAZOLE [Concomitant]
     Active Substance: VORICONAZOLE
     Route: 048
     Dates: start: 20231108
  18. Ursodeoxycholic acid capsules [Concomitant]
     Route: 048
     Dates: start: 20231108, end: 20231130
  19. Polyene Phosphatidylcholine Capsules [Concomitant]
     Route: 048
     Dates: start: 20231108, end: 20231130
  20. LACTULOSE [Concomitant]
     Active Substance: LACTULOSE
     Route: 048
     Dates: start: 20231107, end: 20231107
  21. Palonosetron hydrochloride capsules [Concomitant]
     Route: 048
     Dates: start: 20231107, end: 20231107
  22. LEVOFLOXACIN [Concomitant]
     Active Substance: LEVOFLOXACIN
     Route: 048
     Dates: start: 20231107, end: 20231107
  23. LEUCOGEN [Concomitant]
     Active Substance: LEUCOGEN
     Route: 048
     Dates: start: 20230721
  24. LEUCOGEN [Concomitant]
     Active Substance: LEUCOGEN
     Route: 048
     Dates: start: 20231107
  25. CEFIXIME [Concomitant]
     Active Substance: CEFIXIME
     Route: 048
     Dates: start: 20230719
  26. TELMISARTAN [Concomitant]
     Active Substance: TELMISARTAN
     Route: 048
  27. Levamlodipine maleate tablets [Concomitant]
     Route: 048
  28. Diammonium glycyrrhizinate enteric-coated capsules [Concomitant]
     Route: 048
     Dates: start: 20231130

REACTIONS (17)
  - Lymphocyte count decreased [Recovered/Resolved]
  - White blood cell count decreased [Recovered/Resolved]
  - Neutrophil count decreased [Recovered/Resolved]
  - Gamma-glutamyltransferase increased [Recovered/Resolved]
  - Neutrophil count decreased [Recovered/Resolved]
  - Interstitial lung disease [Recovering/Resolving]
  - Blood uric acid increased [Recovering/Resolving]
  - Bronchopulmonary aspergillosis [Recovering/Resolving]
  - Hypoalbuminaemia [Recovering/Resolving]
  - Hypocalcaemia [Recovering/Resolving]
  - Anaemia [Recovered/Resolved]
  - Aspartate aminotransferase increased [Recovering/Resolving]
  - Hypokalaemia [Recovered/Resolved]
  - Hypophosphataemia [Recovered/Resolved]
  - Platelet count decreased [Recovered/Resolved]
  - Blood alkaline phosphatase increased [Recovered/Resolved]
  - Alanine aminotransferase increased [Recovering/Resolving]

NARRATIVE: CASE EVENT DATE: 20231001
